FAERS Safety Report 13993333 (Version 2)
Quarter: 2017Q4

REPORT INFORMATION
  Report Type: Spontaneous
  Country: DE (occurrence: DE)
  Receive Date: 20170920
  Receipt Date: 20171016
  Transmission Date: 20180321
  Serious: Yes (Death)
  Sender: FDA-Public Use
  Company Number: PHHY2017DE138088

PATIENT
  Sex: Male
  Weight: 60 kg

DRUGS (1)
  1. LACRISIC [Suspect]
     Active Substance: GLYCERIN\HYPROMELLOSES
     Indication: PRODUCT USED FOR UNKNOWN INDICATION
     Dosage: UNK
     Route: 047
     Dates: start: 2012, end: 2017

REACTIONS (2)
  - Multiple sclerosis [Fatal]
  - Multiple organ dysfunction syndrome [Fatal]
